FAERS Safety Report 4748481-8 (Version None)
Quarter: 2005Q3

REPORT INFORMATION
  Report Type: 
  Country: None (occurrence: None)
  Receive Date: 20050817
  Receipt Date: 20050804
  Transmission Date: 20060218
  Serious: Yes (Hospitalization, Other)
  Sender: FDA-Public Use
  Company Number: HQWYE737301MAR05

PATIENT
  Age: 62 Year
  Sex: Male
  Weight: 101.02 kg

DRUGS (6)
  1. RAPAMUNE [Suspect]
     Indication: PROPHYLAXIS AGAINST TRANSPLANT REJECTION
     Dosage: 8 MG 1X PER 1 DAY, ORAL
     Route: 048
     Dates: start: 20050120
  2. PROGRAF [Suspect]
     Indication: PROPHYLAXIS AGAINST TRANSPLANT REJECTION
     Dosage: 9 MG 1X PER 1 DAY, ORAL
     Route: 048
  3. PREDNISONE [Concomitant]
  4. CLONIDINE [Concomitant]
  5. METOPROLOL TARTRATE [Concomitant]
  6. INSULIN (INSULIN) [Concomitant]

REACTIONS (6)
  - BLOOD CREATININE INCREASED [None]
  - BLOOD GLUCOSE INCREASED [None]
  - BLOOD SODIUM DECREASED [None]
  - GRAFT DYSFUNCTION [None]
  - HYPERKALAEMIA [None]
  - RENAL ARTERY STENOSIS [None]
